FAERS Safety Report 6753662-8 (Version None)
Quarter: 2010Q2

REPORT INFORMATION
  Report Type: 
  Country: None (occurrence: None)
  Receive Date: 20100603
  Receipt Date: 20100524
  Transmission Date: 20101027
  Serious: Yes (Life-Threatening, Other)
  Sender: FDA-Public Use
  Company Number: JP-JNJFOC-20100401084

PATIENT
  Age: 69 Year
  Sex: Male
  Weight: 67 kg

DRUGS (12)
  1. REMICADE [Suspect]
     Indication: RHEUMATOID ARTHRITIS
     Dosage: INFUSION 1 FOR PUSTULAR PSORIASIS
     Route: 042
  2. REMICADE [Suspect]
     Dosage: INFUSION 2 FOR PUSTULAR PSORIASIS
     Route: 042
  3. REMICADE [Suspect]
     Dosage: FOR RHEUMATOID ARTHRITIS
     Route: 042
  4. REMICADE [Suspect]
     Indication: PUSTULAR PSORIASIS
     Dosage: INFUSION 2 FOR PUSTULAR PSORIASIS
     Route: 042
  5. REMICADE [Suspect]
     Dosage: FOR RHEUMATOID ARTHRITIS
     Route: 042
  6. REMICADE [Suspect]
     Dosage: INFUSION 1 FOR PUSTULAR PSORIASIS
     Route: 042
  7. TALION [Concomitant]
     Indication: PROPHYLAXIS
     Route: 048
  8. FAMOTIDINE [Concomitant]
     Indication: PROPHYLAXIS
     Route: 048
  9. CALONAL [Concomitant]
     Indication: PROPHYLAXIS
     Route: 048
  10. MYSER [Concomitant]
     Indication: PUSTULAR PSORIASIS
     Dosage: STARTED BEFORE INFLIXIMAB THERAPY  ROUTE: OD
  11. ETRETINATE [Concomitant]
     Indication: PUSTULAR PSORIASIS
     Route: 048
  12. BONALFA [Concomitant]
     Indication: PUSTULAR PSORIASIS
     Dosage: ROUTE: OD

REACTIONS (5)
  - ASPIRATION [None]
  - CHEST PAIN [None]
  - INFUSION RELATED REACTION [None]
  - LOSS OF CONSCIOUSNESS [None]
  - PYREXIA [None]
